FAERS Safety Report 9624706 (Version 1)
Quarter: 2013Q4

REPORT INFORMATION
  Report Type: Report from Study
  Country: JP (occurrence: JP)
  Receive Date: 20131015
  Receipt Date: 20131015
  Transmission Date: 20140711
  Serious: Yes (Death, Other)
  Sender: FDA-Public Use
  Company Number: JP-TAKEDA-TCI2013A06112

PATIENT
  Age: 82 Year
  Sex: Male
  Weight: 75 kg

DRUGS (7)
  1. LANSOPRAZOLE [Suspect]
     Indication: PROPHYLAXIS AGAINST GASTROINTESTINAL ULCER
     Dosage: 15 MG, QD
     Route: 048
  2. BLOPRESS [Concomitant]
     Dosage: 8 MG, UNK
     Route: 048
     Dates: end: 20111003
  3. BAYASPIRIN [Concomitant]
     Indication: THROMBOSIS PROPHYLAXIS
     Route: 048
     Dates: end: 20111003
  4. AMLODIN [Concomitant]
     Route: 048
     Dates: end: 20111003
  5. LASIX [Concomitant]
     Route: 048
     Dates: end: 20111003
  6. ALOSITOL [Concomitant]
     Route: 048
     Dates: end: 20111003
  7. ARGAMATE JELLY [Concomitant]
     Route: 048

REACTIONS (1)
  - Ventricular arrhythmia [Fatal]
